FAERS Safety Report 4865978-0 (Version None)
Quarter: 2005Q4

REPORT INFORMATION
  Report Type: 
  Country: None (occurrence: None)
  Receive Date: 20051226
  Receipt Date: 20051215
  Transmission Date: 20060501
  Serious: Yes (Other)
  Sender: FDA-Public Use
  Company Number: US-AVENTIS-200520519US

PATIENT
  Sex: Female
  Weight: 47.7 kg

DRUGS (8)
  1. KETEK [Suspect]
     Indication: SINUSITIS
     Dosage: DOSE: UNK
     Dates: start: 20050201, end: 20050210
  2. KENALOG [Suspect]
     Dosage: DOSE: UNKNOWN
     Route: 051
     Dates: start: 20050201, end: 20050201
  3. ESTROGEN [Concomitant]
  4. ASPIRIN [Concomitant]
     Indication: HEADACHE
     Dosage: DOSE: UNKNOWN
  5. ZICAM [Concomitant]
     Dosage: DOSE: UNKNOWN
  6. RHINOCORT [Concomitant]
     Dosage: DOSE: UNKNOWN
  7. SUDAFED 12 HOUR [Concomitant]
     Dosage: DOSE: UNK
  8. LORATADINE [Concomitant]
     Dosage: DOSE: UNKNOWN

REACTIONS (6)
  - INTRAOCULAR PRESSURE INCREASED [None]
  - MACULOPATHY [None]
  - PHOTOPSIA [None]
  - RETINAL VEIN OCCLUSION [None]
  - VISION BLURRED [None]
  - VITREOUS FLOATERS [None]
